FAERS Safety Report 8895860 (Version 1)
Quarter: 2012Q4

REPORT INFORMATION
  Report Type: 
  Country: US (occurrence: US)
  Receive Date: 20121108
  Receipt Date: 20121108
  Transmission Date: 20130627
  Serious: Yes (Hospitalization)
  Sender: FDA-Public Use
  Company Number: US-PFIZER INC-2012276643

PATIENT
  Age: 65 Year
  Sex: Female
  Weight: 99.77 kg

DRUGS (6)
  1. TIKOSYN [Suspect]
     Indication: ATRIAL FIBRILLATION
     Dosage: 250 mg, 2x/day
     Dates: start: 201112
  2. ALBUTEROL [Concomitant]
     Indication: LUNG DISORDER
     Dosage: UNK
  3. ALBUTEROL [Concomitant]
     Indication: ASTHMA
  4. OXYGEN [Concomitant]
     Indication: LUNG DISORDER
     Dosage: UNK
  5. OXYGEN [Concomitant]
     Indication: ASTHMA
  6. LASIX [Concomitant]
     Indication: CONGESTIVE HEART FAILURE
     Dosage: 80mg in morning and 40mg at night

REACTIONS (1)
  - Cardiac disorder [Unknown]
